FAERS Safety Report 14677421 (Version 3)
Quarter: 2018Q2

REPORT INFORMATION
  Report Type: Spontaneous
  Country: DK (occurrence: DK)
  Receive Date: 20180325
  Receipt Date: 20180502
  Transmission Date: 20180711
  Serious: Yes (Hospitalization, Other)
  Sender: FDA-Public Use
  Company Number: DK-MYLANLABS-2018M1017300

PATIENT
  Age: 71 Year
  Sex: Male

DRUGS (3)
  1. SIMVASTATIN. [Suspect]
     Active Substance: SIMVASTATIN
     Indication: HYPERTENSION
     Dosage: 80 MG, QD
     Route: 048
  2. AMLODIPINE [Interacting]
     Active Substance: AMLODIPINE BESYLATE
     Indication: HYPERTENSION
     Dosage: 10 MG, QD
  3. ROXITHROMYCIN [Interacting]
     Active Substance: ROXITHROMYCIN
     Indication: INFECTION
     Dosage: 300 MG, QD
     Route: 065

REACTIONS (10)
  - Myoglobin blood increased [Recovering/Resolving]
  - Blood creatine phosphokinase increased [Recovering/Resolving]
  - Muscle atrophy [Recovering/Resolving]
  - Myopathy [Recovered/Resolved]
  - Hyporeflexia [Recovering/Resolving]
  - Rhabdomyolysis [Recovered/Resolved]
  - Gait inability [Recovering/Resolving]
  - Drug interaction [Recovering/Resolving]
  - Myalgia [Recovering/Resolving]
  - Asthenia [Recovering/Resolving]
